FAERS Safety Report 7108986-1 (Version None)
Quarter: 2010Q4

REPORT INFORMATION
  Report Type: 
  Country: None (occurrence: None)
  Receive Date: 20101117
  Receipt Date: 20101103
  Transmission Date: 20110411
  Serious: Yes (Hospitalization)
  Sender: FDA-Public Use
  Company Number: DE-CELGENEUS-062-50794-10101520

PATIENT
  Age: 76 Year

DRUGS (1)
  1. VIDAZA [Suspect]
     Route: 058
     Dates: end: 20070731

REACTIONS (2)
  - MENINGITIS [None]
  - MONOPLEGIA [None]
